FAERS Safety Report 8904727 (Version 1)
Quarter: 2012Q4

REPORT INFORMATION
  Report Type: 
  Country: US (occurrence: US)
  Receive Date: 20121113
  Receipt Date: 20121113
  Transmission Date: 20130627
  Serious: No
  Sender: FDA-Public Use
  Company Number: US-GLAXOSMITHKLINE-A0987704A

PATIENT
  Age: 87 Year
  Sex: Male

DRUGS (13)
  1. CARVEDILOL [Suspect]
     Indication: CARDIOMYOPATHY
     Dosage: 40MG Twice per day
     Route: 048
     Dates: start: 2008
  2. COREG CR [Suspect]
     Indication: CARDIOMYOPATHY
     Route: 048
     Dates: start: 2008
  3. COREG CR [Suspect]
     Indication: CARDIOMYOPATHY
     Dosage: 40MG Per day
     Route: 048
     Dates: start: 2009
  4. THYROTROPHIN [Concomitant]
  5. CALCIUM LACTATE [Concomitant]
  6. MULTIDOPHILUS [Concomitant]
  7. PSYLLIUM HUSK [Concomitant]
  8. B COMPLEX [Concomitant]
  9. VITAMIN A [Concomitant]
  10. DIETARY SUPPLEMENT [Concomitant]
  11. DIGITALIS [Concomitant]
  12. VITAMIN C [Concomitant]
  13. CALCIUM SUPPLEMENT [Concomitant]

REACTIONS (14)
  - Mouth haemorrhage [Recovering/Resolving]
  - Dyspnoea [Unknown]
  - Malaise [Unknown]
  - Decreased appetite [Unknown]
  - Fluid retention [Unknown]
  - Pallor [Unknown]
  - Dyspnoea [Unknown]
  - Local swelling [Unknown]
  - Abdominal distension [Unknown]
  - Hepatomegaly [Unknown]
  - Pneumonia pseudomonas aeruginosa [Unknown]
  - Asthenia [Unknown]
  - Blood magnesium decreased [Unknown]
  - Product quality issue [Unknown]
